FAERS Safety Report 5341573-4 (Version None)
Quarter: 2007Q2

REPORT INFORMATION
  Report Type: 
  Country: None (occurrence: None)
  Receive Date: 20070529
  Receipt Date: 20070529
  Transmission Date: 20071010
  Serious: Yes (Hospitalization)
  Sender: FDA-Public Use
  Company Number: None

PATIENT
  Sex: Male
  Weight: 98.8842 kg

DRUGS (9)
  1. VYTORIN [Suspect]
     Indication: HYPERLIPIDAEMIA
     Dosage: 10/80 PO QHS
     Route: 048
     Dates: start: 20060101, end: 20070301
  2. DOXAZOSIN MESYLATE [Concomitant]
  3. NORVASC [Concomitant]
  4. ASPIRIN [Concomitant]
  5. LUVOX [Concomitant]
  6. ATENOLOL [Concomitant]
  7. COUMADIN [Concomitant]
  8. ALLOPURINOL [Concomitant]
  9. ACTOS [Concomitant]

REACTIONS (1)
  - RHABDOMYOLYSIS [None]
